FAERS Safety Report 4611922-0 (Version None)
Quarter: 2005Q2

REPORT INFORMATION
  Report Type: 
  Country: None (occurrence: None)
  Receive Date: 20050308
  Receipt Date: 20050117
  Transmission Date: 20051028
  Serious: Yes (Other)
  Sender: FDA-Public Use
  Company Number: 2004UW25406

PATIENT
  Age: 40 Year
  Sex: Female

DRUGS (5)
  1. CRESTOR [Suspect]
     Indication: HYPERLIPIDAEMIA
     Dosage: 10 MG DAILY PO
     Route: 048
     Dates: end: 20041207
  2. ATENOLOL [Concomitant]
  3. LASIX [Concomitant]
  4. VOLTAREN [Concomitant]
  5. FLEXERIL [Concomitant]

REACTIONS (4)
  - BLOOD CREATINE PHOSPHOKINASE INCREASED [None]
  - BRONCHITIS ACUTE [None]
  - MYALGIA [None]
  - MYOSITIS [None]
